FAERS Safety Report 6145722-X (Version None)
Quarter: 2009Q2

REPORT INFORMATION
  Report Type: 
  Country: None (occurrence: None)
  Receive Date: 20090407
  Receipt Date: 20090401
  Transmission Date: 20091009
  Serious: Yes (Hospitalization, Other)
  Sender: FDA-Public Use
  Company Number: PHHO2009DE02576

PATIENT
  Sex: Female
  Weight: 42.3 kg

DRUGS (5)
  1. MYFORTIC [Suspect]
     Indication: RENAL TRANSPLANT
     Dosage: 360 MG, QID
     Route: 048
     Dates: start: 20090313
  2. RAD 666 RAD+TAB [Suspect]
     Dosage: UNK
     Dates: start: 20090313
  3. SANDIMMUNE [Suspect]
     Indication: RENAL TRANSPLANT
     Dosage: 150 MG, BID
     Route: 048
     Dates: start: 20090313
  4. ROCALTROL [Suspect]
     Dosage: UNK MG, UNK
     Route: 048
     Dates: start: 20081229, end: 20090212
  5. CALCIUM [Suspect]
     Dosage: UNK
     Route: 048
     Dates: start: 20090120, end: 20090212

REACTIONS (3)
  - HYPERCALCAEMIA [None]
  - RENAL FAILURE ACUTE [None]
  - RENAL TUBULAR DISORDER [None]
